FAERS Safety Report 5952250-0 (Version None)
Quarter: 2008Q4

REPORT INFORMATION
  Report Type: 
  Country: None (occurrence: None)
  Receive Date: 20081113
  Receipt Date: 20081105
  Transmission Date: 20090506
  Serious: Yes (Death)
  Sender: FDA-Public Use
  Company Number: PH-BAXTER-2008BH011994

PATIENT
  Age: 35 Year
  Sex: Male

DRUGS (1)
  1. DIANEAL [Suspect]
     Indication: RENAL DISORDER
     Dosage: DOSE UNIT:UNKNOWN
     Route: 033
     Dates: start: 20080821, end: 20081015

REACTIONS (1)
  - PNEUMONIA [None]
